FAERS Safety Report 18273523 (Version 2)
Quarter: 2020Q3

REPORT INFORMATION
  Report Type: Spontaneous
  Country: US (occurrence: US)
  Receive Date: 20200916
  Receipt Date: 20200928
  Transmission Date: 20201103
  Serious: Yes (Life-Threatening, Hospitalization)
  Sender: FDA-Public Use
  Company Number: US-TEVA-2020-US-1827369

PATIENT
  Age: 35 Year
  Sex: Female

DRUGS (8)
  1. LORAZEPAM. [Concomitant]
     Active Substance: LORAZEPAM
     Indication: STATUS EPILEPTICUS
     Route: 065
  2. LAMOTRIGINE. [Concomitant]
     Active Substance: LAMOTRIGINE
     Indication: PRODUCT USED FOR UNKNOWN INDICATION
     Route: 065
  3. FAT EMULSION NOS [Suspect]
     Active Substance: EGG PHOSPHOLIPIDS\SAFFLOWER OIL\SOYBEAN OIL
     Indication: TOXICITY TO VARIOUS AGENTS
     Dosage: 1.5 ML/KG OVER 5 MINUTES, THEN A DRIP AT 0.25 ML/KG/MIN
     Route: 050
  4. NOREPINEPHRINE. [Concomitant]
     Active Substance: NOREPINEPHRINE
     Indication: HYPOTENSION
     Dosage: 0.48 UG/KG/MIN
     Route: 065
  5. FLUMAZENIL. [Concomitant]
     Active Substance: FLUMAZENIL
     Indication: PRODUCT USED FOR UNKNOWN INDICATION
     Route: 065
  6. MIDAZOLAM. [Concomitant]
     Active Substance: MIDAZOLAM
     Indication: STATUS EPILEPTICUS
     Route: 065
  7. QUETIAPINE. [Suspect]
     Active Substance: QUETIAPINE
     Indication: INTENTIONAL OVERDOSE
     Route: 048
  8. FAT EMULSION NOS [Suspect]
     Active Substance: EGG PHOSPHOLIPIDS\SAFFLOWER OIL\SOYBEAN OIL
     Indication: TOXICITY TO VARIOUS AGENTS
     Dosage: 1.5 ML/KG OVER 5 MINUTES, THEN A DRIP AT 0.25 ML/KG/MIN
     Route: 050

REACTIONS (18)
  - Status epilepticus [Recovering/Resolving]
  - Electrocardiogram QT prolonged [Recovering/Resolving]
  - Lung disorder [Recovering/Resolving]
  - Circulatory collapse [Recovering/Resolving]
  - Encephalopathy [Recovering/Resolving]
  - Mucosal dryness [Recovering/Resolving]
  - Non-cardiogenic pulmonary oedema [Recovering/Resolving]
  - Lung opacity [Recovering/Resolving]
  - Depressed level of consciousness [Recovering/Resolving]
  - Dysarthria [Recovering/Resolving]
  - Respiratory distress [Recovering/Resolving]
  - Toxicity to various agents [Recovering/Resolving]
  - Intentional overdose [Unknown]
  - Hypoxia [Recovering/Resolving]
  - Hypotension [Recovering/Resolving]
  - Tachycardia [Recovering/Resolving]
  - Somnolence [Recovering/Resolving]
  - Pleural effusion [Recovering/Resolving]
